FAERS Safety Report 11195161 (Version 1)
Quarter: 2015Q2

REPORT INFORMATION
  Report Type: Spontaneous
  Country: US (occurrence: None)
  Receive Date: 20150615
  Receipt Date: 20150615
  Transmission Date: 20150821
  Serious: No
  Sender: FDA-Public Use
  Company Number: None

PATIENT
  Age: 56 Year
  Sex: Male
  Weight: 92.99 kg

DRUGS (2)
  1. TAMSULOSIN 0.4MG [Suspect]
     Active Substance: TAMSULOSIN
     Indication: BENIGN PROSTATIC HYPERPLASIA
     Route: 048
     Dates: start: 20150309, end: 20150408
  2. ZINC [Concomitant]
     Active Substance: ZINC\ZINC CHLORIDE

REACTIONS (8)
  - Insomnia [None]
  - Nasal congestion [None]
  - Back pain [None]
  - Rhinorrhoea [None]
  - Pollakiuria [None]
  - Erectile dysfunction [None]
  - Heart rate increased [None]
  - Hallucination [None]

NARRATIVE: CASE EVENT DATE: 20150309
